FAERS Safety Report 8382969 (Version 2)
Quarter: 2012Q4

REPORT INFORMATION
  Report Type: 
  Country: US (occurrence: US)
  Receive Date: 20120201
  Receipt Date: 20121023
  Transmission Date: 20130627
  Serious: Yes (Death, Other)
  Sender: FDA-Public Use
  Company Number: US-ROCHE-1035070

PATIENT
  Sex: Female

DRUGS (2)
  1. AVASTIN [Suspect]
     Indication: BREAST CANCER FEMALE
     Route: 065
     Dates: start: 20070504
  2. AVASTIN [Suspect]
     Indication: BREAST CANCER FEMALE

REACTIONS (3)
  - Death [Fatal]
  - Dyspnoea [Unknown]
  - Metastasis [Unknown]
